FAERS Safety Report 9006901 (Version 3)
Quarter: 2013Q2

REPORT INFORMATION
  Report Type: Spontaneous
  Country: UY (occurrence: UY)
  Receive Date: 20130110
  Receipt Date: 20130430
  Transmission Date: 20140414
  Serious: Yes (Hospitalization)
  Sender: FDA-Public Use
  Company Number: UY-ABBOTT-13P-168-1032225-00

PATIENT
  Age: 66 Year
  Sex: Female

DRUGS (2)
  1. HUMIRA [Suspect]
     Indication: RHEUMATOID ARTHRITIS
     Route: 058
     Dates: start: 20121210, end: 20130102
  2. KETOPHEN [Concomitant]
     Indication: PRODUCT USED FOR UNKNOWN INDICATION
     Route: 048

REACTIONS (8)
  - Stomatitis [Recovering/Resolving]
  - Erysipelas [Recovering/Resolving]
  - Diarrhoea [Recovered/Resolved]
  - Erysipelas [Recovered/Resolved]
  - Fall [Unknown]
  - Skin ulcer [Recovering/Resolving]
  - Skin ulcer [Recovering/Resolving]
  - Skin ulcer haemorrhage [Recovering/Resolving]
